FAERS Safety Report 4992558-9 (Version None)
Quarter: 2006Q1

REPORT INFORMATION
  Report Type: 
  Country: None (occurrence: None)
  Receive Date: 20060313
  Receipt Date: 20060124
  Transmission Date: 20060701
  Serious: No
  Sender: FDA-Public Use
  Company Number: 2006-BP-00896BP

PATIENT
  Age: 61 Year
  Sex: Female

DRUGS (9)
  1. SPIRIVA [Suspect]
     Indication: CHRONIC OBSTRUCTIVE PULMONARY DISEASE
     Dosage: 18 MCG (18 MCG, 1 IN 1 D), IH
     Route: 055
  2. SPIRIVA [Suspect]
  3. ADVAIR (SERETIDE) [Concomitant]
  4. TOPAMAX [Concomitant]
  5. PAXIL [Concomitant]
  6. TRAZODONE HCL [Concomitant]
  7. MS CONTIN [Concomitant]
  8. DECONAMINE SR [Concomitant]
  9. ALBUTEROL SULFATE AUTOHALER [Concomitant]

REACTIONS (2)
  - AGEUSIA [None]
  - DRUG EFFECT DECREASED [None]
